FAERS Safety Report 4323682-1 (Version None)
Quarter: 2004Q1

REPORT INFORMATION
  Report Type: 
  Country: None (occurrence: None)
  Receive Date: 20040322
  Receipt Date: 20040301
  Transmission Date: 20041129
  Serious: Yes (Death, Other)
  Sender: FDA-Public Use
  Company Number: B0324970A

PATIENT
  Sex: 0

DRUGS (3)
  1. LEUKERAN [Suspect]
     Indication: CHRONIC LYMPHOCYTIC LEUKAEMIA
     Dosage: 30 MG/M2/ CYCLIC/ORAL
     Route: 048
  2. PENTOSTATIN (PENTOSTATIN) [Suspect]
     Indication: CHRONIC LYMPHOCYTIC LEUKAEMIA
     Dosage: CYCLIC/INTRAVENOUS
     Route: 042
  3. PREDNISONE [Suspect]
     Indication: CHRONIC LYMPHOCYTIC LEUKAEMIA
     Dosage: CYCLIC/ORAL
     Route: 048

REACTIONS (3)
  - DRUG INEFFECTIVE [None]
  - DRUG TOXICITY [None]
  - PNEUMONIA HERPES VIRAL [None]
